FAERS Safety Report 7815602-X (Version None)
Quarter: 2011Q4

REPORT INFORMATION
  Report Type: 
  Country: None (occurrence: None)
  Receive Date: 20111014
  Receipt Date: 20111004
  Transmission Date: 20120403
  Serious: Yes (Other)
  Sender: FDA-Public Use
  Company Number: PHHY2011MX88829

PATIENT
  Sex: Male

DRUGS (5)
  1. NEORAL [Suspect]
     Dosage: 25 MG, UNK
  2. NEORAL [Suspect]
     Dosage: 100 MG, UNK
  3. NEORAL [Suspect]
     Dosage: 50 MG, UNK
  4. IMMUNOSUPPRESSANTS [Concomitant]
     Dosage: UNK UKN, UNK
  5. NEORAL [Suspect]
     Indication: RENAL TRANSPLANT
     Dosage: 10 MG, UNK

REACTIONS (1)
  - HEPATITIS TOXIC [None]
